FAERS Safety Report 7685294-1 (Version None)
Quarter: 2011Q3

REPORT INFORMATION
  Report Type: 
  Country: None (occurrence: None)
  Receive Date: 20110816
  Receipt Date: 20110808
  Transmission Date: 20111222
  Serious: Yes (Death, Hospitalization)
  Sender: FDA-Public Use
  Company Number: US-SANOFI-AVENTIS-2011SA051852

PATIENT
  Age: 72 Year
  Sex: Female
  Weight: 66.5 kg

DRUGS (10)
  1. FAMOTIDINE [Concomitant]
  2. DISOTHIAZIDE [Concomitant]
     Dates: end: 20060606
  3. FUSID [Concomitant]
  4. MEGACE [Concomitant]
  5. NORMITEN [Concomitant]
  6. DURAGESIC-100 [Concomitant]
  7. VITACAL [Concomitant]
  8. SUNITINIB MALATE [Suspect]
     Route: 065
     Dates: start: 20060524, end: 20060703
  9. ENOXAPARIN SODIUM [Suspect]
     Route: 048
     Dates: start: 20060101, end: 20060703
  10. CLODRONIC ACID [Concomitant]

REACTIONS (3)
  - HAEMATEMESIS [None]
  - GENERAL PHYSICAL HEALTH DETERIORATION [None]
  - HAEMATURIA [None]
